FAERS Safety Report 5149583-7 (Version None)
Quarter: 2006Q4

REPORT INFORMATION
  Report Type: 
  Country: None (occurrence: None)
  Receive Date: 20061113
  Receipt Date: 20060518
  Transmission Date: 20070319
  Serious: No
  Sender: FDA-Public Use
  Company Number: US-GLAXOSMITHKLINE-A0606221A

PATIENT
  Sex: Male

DRUGS (9)
  1. COREG [Suspect]
     Dosage: 6.25MG PER DAY
     Route: 048
  2. FUROSEMIDE [Concomitant]
  3. FOLIC ACID [Concomitant]
  4. ASPIRIN [Concomitant]
  5. VITAMIN E [Concomitant]
  6. BENAZEPRIL HYDROCHLORIDE [Concomitant]
  7. FLOMAX [Concomitant]
  8. VYTORIN [Concomitant]
  9. WARFARIN SODIUM [Concomitant]

REACTIONS (2)
  - FATIGUE [None]
  - ILL-DEFINED DISORDER [None]
